FAERS Safety Report 10032381 (Version 1)
Quarter: 2014Q1

REPORT INFORMATION
  Report Type: Spontaneous
  Country: US (occurrence: US)
  Receive Date: 20140324
  Receipt Date: 20140324
  Transmission Date: 20141002
  Serious: Yes (Other)
  Sender: FDA-Public Use
  Company Number: US-AMGEN-USASP2014019441

PATIENT
  Age: 51 Year
  Sex: Male

DRUGS (4)
  1. ENBREL [Suspect]
     Indication: RHEUMATOID ARTHRITIS
     Dosage: UNK UNK, QWK
     Route: 065
     Dates: start: 201308, end: 201312
  2. METHOTREXATE [Concomitant]
     Dosage: 2.5 MG, QWK
     Route: 065
     Dates: start: 201304
  3. XELJANZ [Concomitant]
     Dosage: 25 MG, QD
     Route: 065
     Dates: start: 201401
  4. PREDNISONE [Concomitant]
     Dosage: 2.5 MG, QD
     Dates: start: 201304

REACTIONS (2)
  - Rheumatoid arthritis [Not Recovered/Not Resolved]
  - Injection site erythema [Recovered/Resolved]
